FAERS Safety Report 5402253-X (Version None)
Quarter: 2007Q3

REPORT INFORMATION
  Report Type: 
  Country: None (occurrence: None)
  Receive Date: 20070801
  Receipt Date: 20070727
  Transmission Date: 20080115
  Serious: Yes (Other)
  Sender: FDA-Public Use
  Company Number: US-JNJFOC-20070706510

PATIENT
  Age: 34 Year
  Sex: Female

DRUGS (6)
  1. LEVOFLOXACIN [Suspect]
     Indication: URINARY TRACT INFECTION
     Route: 065
  2. WARFARIN SODIUM [Interacting]
     Route: 065
  3. WARFARIN SODIUM [Interacting]
     Indication: PULMONARY EMBOLISM
     Route: 065
  4. ENOXAPARIN SODIUM [Suspect]
     Indication: DRUG USE FOR UNKNOWN INDICATION
     Route: 065
  5. HALOPERIDOL [Concomitant]
     Route: 065
  6. RISPERIDONE [Concomitant]
     Route: 065

REACTIONS (2)
  - DRUG INTERACTION [None]
  - RETROPERITONEAL HAEMATOMA [None]
